FAERS Safety Report 8531221-4 (Version None)
Quarter: 2012Q3

REPORT INFORMATION
  Report Type: 
  Country: None (occurrence: None)
  Receive Date: 20120723
  Receipt Date: 20120709
  Transmission Date: 20120928
  Serious: Yes (Other)
  Sender: FDA-Public Use
  Company Number: JP-ELI_LILLY_AND_COMPANY-JP201207003020

PATIENT
  Sex: Female

DRUGS (4)
  1. STRATTERA [Suspect]
     Dosage: UNK
     Route: 048
     Dates: start: 20110511, end: 20120401
  2. STRATTERA [Suspect]
     Dosage: 50 MG, UNK
     Route: 048
     Dates: start: 20120401
  3. STRATTERA [Suspect]
     Dosage: 25 MG, UNK
     Route: 048
  4. ABILIFY [Concomitant]

REACTIONS (2)
  - WEIGHT INCREASED [None]
  - INCREASED APPETITE [None]
